FAERS Safety Report 18567445 (Version 3)
Quarter: 2021Q1

REPORT INFORMATION
  Report Type: Report from Study
  Country: KR (occurrence: KR)
  Receive Date: 20201201
  Receipt Date: 20210113
  Transmission Date: 20210419
  Serious: Yes (Hospitalization)
  Sender: FDA-Public Use
  Company Number: KR-CELLTRION INC.-2020KR032740

PATIENT

DRUGS (14)
  1. NEXIUM I.V. [Concomitant]
     Active Substance: ESOMEPRAZOLE SODIUM
     Indication: GASTROOESOPHAGEAL REFLUX DISEASE
  2. GASMOTIN [Concomitant]
     Active Substance: MOSAPRIDE CITRATE
     Indication: PROPHYLAXIS
     Dosage: 15 MG
     Route: 048
     Dates: start: 20201105
  3. RAMUCIRUMAB [Suspect]
     Active Substance: RAMUCIRUMAB
     Indication: GASTRIC CANCER
     Dosage: 380 MG (TOTAL DAILY DOSE) (ROUTE: INJECTION) 8MG/KG(BIWEEKLY)
     Route: 042
     Dates: start: 20200610
  4. GASTER [CROMOGLICATE SODIUM] [Concomitant]
     Indication: PREMEDICATION
     Dosage: 5 MG
     Route: 042
     Dates: start: 20201105, end: 20201105
  5. PHAZYME [DIASTASE;PANCREATIN;PEPSIN;SIMETICONE] [Concomitant]
     Indication: PROPHYLAXIS
     Dosage: 3 DF
     Route: 048
     Dates: start: 20201105
  6. PACLITAXEL. [Suspect]
     Active Substance: PACLITAXEL
     Indication: GASTRIC CANCER
     Dosage: 110 MG (TOTAL DAILY DOSE) (ROUTE: INJECTION) 70MG/M2 (WEEKLY)
     Route: 042
     Dates: start: 20200610
  7. DEXAMETHASONE. [Concomitant]
     Active Substance: DEXAMETHASONE
     Indication: PREMEDICATION
     Dosage: 5 MG
     Route: 042
     Dates: start: 20201105, end: 20201105
  8. NEXIUM I.V. [Concomitant]
     Active Substance: ESOMEPRAZOLE SODIUM
     Indication: PROPHYLAXIS
     Dosage: 40 MG
     Route: 048
     Dates: start: 20201105
  9. PHAZYME [DIASTASE;PANCREATIN;PEPSIN;SIMETICONE] [Concomitant]
     Indication: DYSPEPSIA
  10. HERZUMA [Suspect]
     Active Substance: TRASTUZUMAB-PKRB
     Indication: GASTRIC CANCER
     Dosage: 100 MG (TOTAL DAILY DOSE) (ROUTE: INJECTION) 2MG/KG(WEEKLY)
     Route: 042
     Dates: start: 20200610
  11. TARGIN PR [Concomitant]
     Indication: PAIN
     Dosage: 2 DF
     Route: 048
     Dates: start: 20201105
  12. GASMOTIN [Concomitant]
     Active Substance: MOSAPRIDE CITRATE
     Indication: GASTROOESOPHAGEAL REFLUX DISEASE
  13. CHLORPHENIRAMINE [CHLORPHENAMINE] [Concomitant]
     Active Substance: CHLORPHENIRAMINE
     Indication: PREMEDICATION
     Dosage: 20 MG
     Route: 042
     Dates: start: 20201105, end: 20201105
  14. HYDROCORTISONE. [Concomitant]
     Active Substance: HYDROCORTISONE
     Indication: SECONDARY ADRENOCORTICAL INSUFFICIENCY
     Dosage: 20 MG
     Route: 048
     Dates: start: 20200428

REACTIONS (1)
  - Cholecystitis [Recovered/Resolved]

NARRATIVE: CASE EVENT DATE: 20201119
